FAERS Safety Report 6915909-4 (Version None)
Quarter: 2010Q3

REPORT INFORMATION
  Report Type: 
  Country: None (occurrence: None)
  Receive Date: 20100804
  Receipt Date: 20100721
  Transmission Date: 20110219
  Serious: Yes (Other)
  Sender: FDA-Public Use
  Company Number: A-CH2010-38301

PATIENT
  Age: 9 Day
  Weight: 2.5 kg

DRUGS (1)
  1. TRACLEER [Suspect]
     Indication: PERSISTENT FOETAL CIRCULATION
     Dosage: 1 MG/KG, OD, ORAL
     Route: 048

REACTIONS (5)
  - CAESAREAN SECTION [None]
  - MATERNAL DRUGS AFFECTING FOETUS [None]
  - PATENT DUCTUS ARTERIOSUS [None]
  - PERSISTENT FOETAL CIRCULATION [None]
  - TRICUSPID VALVE INCOMPETENCE [None]
